FAERS Safety Report 19441496 (Version 2)
Quarter: 2021Q2

REPORT INFORMATION
  Report Type: Spontaneous
  Country: AU (occurrence: AU)
  Receive Date: 20210621
  Receipt Date: 20210628
  Transmission Date: 20210717
  Serious: No
  Sender: FDA-Public Use
  Company Number: AU-ORGANON-O2106AUS001074

PATIENT
  Sex: Female

DRUGS (1)
  1. NOVASONE [Suspect]
     Active Substance: MOMETASONE FUROATE
     Indication: EAR DISORDER
     Dosage: UNK
     Dates: start: 2021

REACTIONS (2)
  - Product prescribing error [Unknown]
  - Product label confusion [Unknown]
